FAERS Safety Report 24173768 (Version 3)
Quarter: 2024Q3

REPORT INFORMATION
  Report Type: Report from Study
  Country: EG (occurrence: EG)
  Receive Date: 20240805
  Receipt Date: 20240815
  Transmission Date: 20241016
  Serious: Yes (Hospitalization, Disabling, Other)
  Sender: ROCHE
  Company Number: EG-ROCHE-10000040439

PATIENT
  Age: 28 Year
  Sex: Male
  Weight: 58 kg

DRUGS (1)
  1. OCREVUS [Suspect]
     Active Substance: OCRELIZUMAB
     Indication: Multiple sclerosis
     Route: 042
     Dates: start: 20200930

REACTIONS (5)
  - Musculoskeletal stiffness [Not Recovered/Not Resolved]
  - Insomnia [Recovered/Resolved]
  - Hemiplegia [Not Recovered/Not Resolved]
  - Drug ineffective [Unknown]
  - Gait disturbance [Not Recovered/Not Resolved]
